FAERS Safety Report 7531524-6 (Version None)
Quarter: 2011Q2

REPORT INFORMATION
  Report Type: 
  Country: None (occurrence: None)
  Receive Date: 20110608
  Receipt Date: 20110602
  Transmission Date: 20111010
  Serious: Yes (Hospitalization)
  Sender: FDA-Public Use
  Company Number: TW-SANOFI-AVENTIS-2011SA032788

PATIENT
  Age: 78 Year
  Sex: Male
  Weight: 57 kg

DRUGS (4)
  1. SENNOSIDE A+B CALCIUM [Concomitant]
     Route: 048
  2. GLIMEPIRIDE [Concomitant]
     Indication: DIABETES MELLITUS
     Route: 048
  3. INSULIN GLARGINE [Suspect]
     Route: 058
     Dates: start: 20110502
  4. ACARBOSE [Concomitant]
     Indication: DIABETES MELLITUS
     Route: 048

REACTIONS (1)
  - CONVULSION [None]
